FAERS Safety Report 6674645-2 (Version None)
Quarter: 2010Q2

REPORT INFORMATION
  Report Type: 
  Country: None (occurrence: None)
  Receive Date: 20100409
  Receipt Date: 20100327
  Transmission Date: 20101027
  Serious: Yes (Other)
  Sender: FDA-Public Use
  Company Number: US-PFIZER INC-2008001347

PATIENT
  Sex: Female
  Weight: 63 kg

DRUGS (8)
  1. CHANTIX [Suspect]
     Indication: SMOKING CESSATION THERAPY
     Dosage: 0.5 MG, 1X/DAY
     Dates: start: 20070915, end: 20070101
  2. CHANTIX [Suspect]
     Dosage: 1 MG, 2X/DAY
     Route: 048
     Dates: start: 20070101, end: 20070915
  3. CHANTIX [Suspect]
     Dosage: 1 MG, 2X/DAY
     Route: 048
     Dates: start: 20071220, end: 20071223
  4. CHANTIX [Suspect]
     Dosage: UNK
     Route: 048
     Dates: start: 20080101, end: 20080101
  5. WELLBUTRIN [Suspect]
     Indication: SMOKING CESSATION THERAPY
     Dosage: 150 MG, 2X/DAY
     Route: 048
     Dates: start: 20070101
  6. WELLBUTRIN [Suspect]
     Indication: DEPRESSION
  7. ATENOLOL [Concomitant]
     Indication: CARDIAC DISORDER
     Dosage: UNK
  8. LEVOXYL [Concomitant]
     Indication: THYROID DISORDER
     Dosage: 0.25 UG, UNK

REACTIONS (3)
  - FEAR [None]
  - MUSCLE SPASMS [None]
  - PAIN IN EXTREMITY [None]
